FAERS Safety Report 13936810 (Version 1)
Quarter: 2017Q3

REPORT INFORMATION
  Report Type: Report from Study
  Country: BR (occurrence: BR)
  Receive Date: 20170905
  Receipt Date: 20170905
  Transmission Date: 20171127
  Serious: Yes (Other)
  Sender: FDA-Public Use
  Company Number: PHHY2017BR129889

PATIENT
  Sex: Female
  Weight: 70 kg

DRUGS (2)
  1. EXELON PATCH [Suspect]
     Active Substance: RIVASTIGMINE
     Indication: DEMENTIA ALZHEIMER^S TYPE
     Dosage: 4.6 MG, QD, PATCH 5 (CM2)
     Route: 062
  2. EXELON PATCH [Suspect]
     Active Substance: RIVASTIGMINE
     Dosage: 9.5 MG, QD, PATCH 10 (CM2)
     Route: 062

REACTIONS (6)
  - Fatigue [Unknown]
  - Dysstasia [Recovering/Resolving]
  - Gait inability [Recovering/Resolving]
  - Drug intolerance [Unknown]
  - Malaise [Recovered/Resolved]
  - Movement disorder [Unknown]
